FAERS Safety Report 5723441-9 (Version None)
Quarter: 2008Q2

REPORT INFORMATION
  Report Type: 
  Country: None (occurrence: None)
  Receive Date: 20080430
  Receipt Date: 20080418
  Transmission Date: 20081010
  Serious: Yes (Hospitalization)
  Sender: FDA-Public Use
  Company Number: BR-BAYER-200813308LA

PATIENT
  Age: 49 Year
  Sex: Female
  Weight: 58 kg

DRUGS (3)
  1. CIPRO XR [Suspect]
     Indication: URINARY TRACT INFECTION
     Route: 042
     Dates: start: 20080301, end: 20080301
  2. CIPRO XR [Suspect]
     Dosage: UNIT DOSE: 1000 MG
     Route: 048
     Dates: start: 20080301, end: 20080301
  3. CIPRO XR [Suspect]
     Dosage: UNIT DOSE: 1000 MG
     Route: 048
     Dates: start: 20080201, end: 20080201

REACTIONS (1)
  - URINARY TRACT INFECTION [None]
